FAERS Safety Report 9165882 (Version 1)
Quarter: 2013Q1

REPORT INFORMATION
  Report Type: Spontaneous
  Country: DK (occurrence: DK)
  Receive Date: 20130315
  Receipt Date: 20130315
  Transmission Date: 20140127
  Serious: Yes (Hospitalization, Disabling)
  Sender: FDA-Public Use
  Company Number: PHHY2013DK006870

PATIENT
  Sex: Female

DRUGS (2)
  1. SIRDALUD [Suspect]
     Indication: MULTIPLE SCLEROSIS
     Dosage: 6 MG, BID
     Dates: start: 2002
  2. CIPROFLOXACIN [Interacting]
     Indication: CYSTITIS
     Dosage: UNK UKN, UNK
     Dates: start: 20120711, end: 20120714

REACTIONS (5)
  - Musculoskeletal discomfort [Not Recovered/Not Resolved]
  - Ligament sprain [Not Recovered/Not Resolved]
  - Restlessness [Not Recovered/Not Resolved]
  - Muscular weakness [Not Recovered/Not Resolved]
  - Drug interaction [Unknown]
